FAERS Safety Report 4443814-4 (Version None)
Quarter: 2004Q3

REPORT INFORMATION
  Report Type: 
  Country: None (occurrence: None)
  Receive Date: 20040908
  Receipt Date: 20040904
  Transmission Date: 20050211
  Serious: Yes (Other)
  Sender: FDA-Public Use
  Company Number: PHNU2004DE03120

PATIENT
  Sex: Female

DRUGS (3)
  1. SANDIMMUNE [Suspect]
     Indication: SCLERODERMA
  2. CORTISONE [Concomitant]
  3. ACE INHIBITOR NOS [Concomitant]

REACTIONS (2)
  - DIALYSIS [None]
  - NEPHROTIC SYNDROME [None]
